FAERS Safety Report 25730454 (Version 1)
Quarter: 2025Q3

REPORT INFORMATION
  Report Type: Spontaneous
  Country: US (occurrence: US)
  Receive Date: 20250827
  Receipt Date: 20250827
  Transmission Date: 20251020
  Serious: Yes (Hospitalization)
  Sender: MYLAN
  Company Number: US-MYLANLABS-2025M1071763

PATIENT
  Sex: Female

DRUGS (12)
  1. NEURONTIN [Suspect]
     Active Substance: GABAPENTIN
     Indication: Product used for unknown indication
     Dosage: 300 MILLIGRAM, Q3W (1 CAPSULE BY MOUTH THREE TIMES A WEEK )
  2. NEURONTIN [Suspect]
     Active Substance: GABAPENTIN
     Dosage: 300 MILLIGRAM, Q3W (1 CAPSULE BY MOUTH THREE TIMES A WEEK )
     Route: 048
  3. NEURONTIN [Suspect]
     Active Substance: GABAPENTIN
     Dosage: 300 MILLIGRAM, Q3W (1 CAPSULE BY MOUTH THREE TIMES A WEEK )
     Route: 048
  4. NEURONTIN [Suspect]
     Active Substance: GABAPENTIN
     Dosage: 300 MILLIGRAM, Q3W (1 CAPSULE BY MOUTH THREE TIMES A WEEK )
  5. COLESTIPOL [Suspect]
     Active Substance: COLESTIPOL
     Indication: Product used for unknown indication
     Dosage: 1 GRAM, BID (1 TABLET BY MOUTH TWO TIMES A DAY)
  6. COLESTIPOL [Suspect]
     Active Substance: COLESTIPOL
     Dosage: 1 GRAM, BID (1 TABLET BY MOUTH TWO TIMES A DAY)
     Route: 048
  7. COLESTIPOL [Suspect]
     Active Substance: COLESTIPOL
     Dosage: 1 GRAM, BID (1 TABLET BY MOUTH TWO TIMES A DAY)
     Route: 048
  8. COLESTIPOL [Suspect]
     Active Substance: COLESTIPOL
     Dosage: 1 GRAM, BID (1 TABLET BY MOUTH TWO TIMES A DAY)
  9. LOMOTIL [Suspect]
     Active Substance: ATROPINE SULFATE\DIPHENOXYLATE HYDROCHLORIDE
     Indication: Diarrhoea
     Dosage: 1 DOSAGE FORM, QID (2.5-0.025 MG PER TABLET, FOUR TIMES A DAY AS NEEDED)
  10. LOMOTIL [Suspect]
     Active Substance: ATROPINE SULFATE\DIPHENOXYLATE HYDROCHLORIDE
     Dosage: 1 DOSAGE FORM, QID (2.5-0.025 MG PER TABLET, FOUR TIMES A DAY AS NEEDED)
     Route: 048
  11. LOMOTIL [Suspect]
     Active Substance: ATROPINE SULFATE\DIPHENOXYLATE HYDROCHLORIDE
     Dosage: 1 DOSAGE FORM, QID (2.5-0.025 MG PER TABLET, FOUR TIMES A DAY AS NEEDED)
     Route: 048
  12. LOMOTIL [Suspect]
     Active Substance: ATROPINE SULFATE\DIPHENOXYLATE HYDROCHLORIDE
     Dosage: 1 DOSAGE FORM, QID (2.5-0.025 MG PER TABLET, FOUR TIMES A DAY AS NEEDED)

REACTIONS (2)
  - Gastrointestinal haemorrhage [Unknown]
  - Hypomagnesaemia [Recovered/Resolved]

NARRATIVE: CASE EVENT DATE: 20250101
